FAERS Safety Report 9272216 (Version 1)
Quarter: 2013Q2

REPORT INFORMATION
  Report Type: Spontaneous
  Country: US (occurrence: US)
  Receive Date: 20130506
  Receipt Date: 20130506
  Transmission Date: 20140414
  Serious: No
  Sender: FDA-Public Use
  Company Number: US-ASTRAZENECA-2013SE08556

PATIENT
  Age: 82 Year
  Sex: Female

DRUGS (7)
  1. PRILOSEC OTC [Suspect]
     Route: 048
     Dates: start: 20130201, end: 20130201
  2. XARELTO [Concomitant]
  3. RAMIPRIL [Concomitant]
  4. SIMVASTATIN [Concomitant]
  5. AMLOPIN [Concomitant]
  6. METOPROLOL [Concomitant]
  7. LUTEIN [Concomitant]

REACTIONS (1)
  - Diarrhoea [Recovered/Resolved]
